FAERS Safety Report 21813068 (Version 1)
Quarter: 2023Q1

REPORT INFORMATION
  Report Type: Spontaneous
  Country: US (occurrence: None)
  Receive Date: 20230102
  Receipt Date: 20230102
  Transmission Date: 20230417
  Serious: No
  Sender: FDA-Public Use
  Company Number: None

PATIENT
  Age: 70 Year
  Sex: Female
  Weight: 48.6 kg

DRUGS (11)
  1. EVENITY [Suspect]
     Active Substance: ROMOSOZUMAB-AQQG
  2. NAPROXEN [Suspect]
     Active Substance: NAPROXEN
  3. TYLENOL [Suspect]
     Active Substance: ACETAMINOPHEN
  4. CALCIUM [Concomitant]
     Active Substance: CALCIUM
  5. ZINC [Concomitant]
     Active Substance: ZINC
  6. VITAMINS [Concomitant]
     Active Substance: VITAMINS
  7. VITAMIN C [Concomitant]
     Active Substance: ASCORBIC ACID
  8. Multiminerals [Concomitant]
  9. VITAMIN D [Concomitant]
     Active Substance: VITAMIN D NOS
  10. VITAMIN K [Concomitant]
     Active Substance: PHYTONADIONE
  11. VITAMIN B [Concomitant]
     Active Substance: VITAMIN B

REACTIONS (2)
  - Headache [None]
  - Bone pain [None]

NARRATIVE: CASE EVENT DATE: 20220622
